FAERS Safety Report 20695631 (Version 1)
Quarter: 2022Q2

REPORT INFORMATION
  Report Type: Spontaneous
  Country: JP (occurrence: JP)
  Receive Date: 20220411
  Receipt Date: 20220411
  Transmission Date: 20220721
  Serious: Yes (Hospitalization, Other)
  Sender: FDA-Public Use
  Company Number: JP-GLAXOSMITHKLINE-JP2022GSK059051

PATIENT
  Age: 65 Year
  Sex: Female

DRUGS (3)
  1. PAROXETINE [Suspect]
     Active Substance: PAROXETINE
     Indication: Depression
     Dosage: UNK
     Route: 065
  2. TRAZODONE [Suspect]
     Active Substance: TRAZODONE HYDROCHLORIDE
     Indication: Insomnia
     Dosage: UNK
     Route: 065
  3. CARBIDOPA AND LEVODOPA [Concomitant]
     Active Substance: CARBIDOPA\LEVODOPA
     Indication: Parkinsonism
     Dosage: UNK
     Route: 065

REACTIONS (17)
  - Hyperthermia malignant [Recovering/Resolving]
  - Urosepsis [Recovering/Resolving]
  - Blood creatine phosphokinase increased [Recovering/Resolving]
  - Tachycardia [Recovering/Resolving]
  - Acute kidney injury [Recovering/Resolving]
  - Neuroleptic malignant syndrome [Recovering/Resolving]
  - Somnolence [Recovering/Resolving]
  - Serotonin syndrome [Recovering/Resolving]
  - Myoclonus [Recovering/Resolving]
  - Palpitations [Recovering/Resolving]
  - Agitation [Recovering/Resolving]
  - Myalgia [Recovering/Resolving]
  - Hyperhidrosis [Recovering/Resolving]
  - Mydriasis [Recovering/Resolving]
  - Hypertension [Recovering/Resolving]
  - Tremor [Recovering/Resolving]
  - Hyperhidrosis [Recovering/Resolving]
